FAERS Safety Report 9291480 (Version 6)
Quarter: 2014Q2

REPORT INFORMATION
  Report Type: Spontaneous
  Country: US (occurrence: US)
  Receive Date: 20130515
  Receipt Date: 20140528
  Transmission Date: 20141212
  Serious: Yes (Other)
  Sender: FDA-Public Use
  Company Number: US-009507513-1305USA009320

PATIENT
  Sex: Male
  Weight: 102.95 kg

DRUGS (5)
  1. PROPECIA [Suspect]
     Indication: ALOPECIA
     Dosage: 1 MG, QD
     Route: 048
     Dates: start: 20050804, end: 200901
  2. PROTONIX [Concomitant]
     Indication: GASTROOESOPHAGEAL REFLUX DISEASE
     Dosage: UNK
     Dates: start: 20050701
  3. LOVASTATIN [Concomitant]
     Indication: BLOOD CHOLESTEROL INCREASED
     Dosage: UNK
     Dates: start: 20050808
  4. LIPITOR [Concomitant]
     Indication: BLOOD CHOLESTEROL INCREASED
     Dosage: UNK
     Dates: start: 20050831, end: 20080730
  5. AMOXICILLIN [Concomitant]
     Dosage: UNK
     Dates: start: 20050925, end: 20080612

REACTIONS (32)
  - Hip arthroplasty [Unknown]
  - Chronic obstructive pulmonary disease [Not Recovered/Not Resolved]
  - Spider vein [Unknown]
  - Viral upper respiratory tract infection [Unknown]
  - Actinic keratosis [Not Recovered/Not Resolved]
  - Nocturia [Not Recovered/Not Resolved]
  - Hypogonadism [Recovering/Resolving]
  - Erectile dysfunction [Recovering/Resolving]
  - Hypertension [Unknown]
  - Libido decreased [Recovering/Resolving]
  - Hypertension [Unknown]
  - Chronic obstructive pulmonary disease [Unknown]
  - Urinary tract infection [Recovered/Resolved]
  - Blood creatinine increased [Unknown]
  - Bacterial prostatitis [Unknown]
  - Benign prostatic hyperplasia [Recovered/Resolved]
  - Bladder diverticulum [Unknown]
  - Renal cyst [Unknown]
  - Breast mass [Unknown]
  - Hepatic cyst [Unknown]
  - Fatigue [Not Recovered/Not Resolved]
  - Diverticulum [Not Recovered/Not Resolved]
  - Renal failure chronic [Not Recovered/Not Resolved]
  - Arthralgia [Not Recovered/Not Resolved]
  - Skin injury [Not Recovered/Not Resolved]
  - Arthritis [Not Recovered/Not Resolved]
  - Skin lesion [Not Recovered/Not Resolved]
  - Hyperlipidaemia [Not Recovered/Not Resolved]
  - Hernia repair [Unknown]
  - Hepatic enzyme increased [Unknown]
  - Pain [Unknown]
  - Hypersensitivity [Unknown]
